FAERS Safety Report 9694824 (Version 2)
Quarter: 2014Q2

REPORT INFORMATION
  Report Type: Spontaneous
  Country: CA (occurrence: CA)
  Receive Date: 20131119
  Receipt Date: 20140612
  Transmission Date: 20141212
  Serious: Yes (Hospitalization, Other)
  Sender: FDA-Public Use
  Company Number: CA-AMGEN-CANSP2013081063

PATIENT
  Age: 39 Year
  Sex: Female

DRUGS (1)
  1. ENBREL [Suspect]
     Indication: ANKYLOSING SPONDYLITIS
     Dosage: 50 MG, UNK
     Route: 065
     Dates: start: 20130828

REACTIONS (7)
  - Wound dehiscence [Recovering/Resolving]
  - Wound secretion [Unknown]
  - Incision site infection [Recovered/Resolved]
  - Weight increased [Recovered/Resolved]
  - Malaise [Unknown]
  - Wound complication [Unknown]
  - Mobility decreased [Unknown]
